FAERS Safety Report 18402448 (Version 1)
Quarter: 2020Q4

REPORT INFORMATION
  Report Type: Spontaneous
  Country: US (occurrence: US)
  Receive Date: 20201019
  Receipt Date: 20201019
  Transmission Date: 20210114
  Serious: No
  Sender: FDA-Public Use
  Company Number: US-FRESENIUS KABI-FK202010865

PATIENT
  Sex: Female

DRUGS (2)
  1. OXYTOCIN INJECTION, USP [Suspect]
     Active Substance: OXYTOCIN
     Indication: LABOUR INDUCTION
     Route: 065
  2. OXYTOCIN INJECTION, USP [Suspect]
     Active Substance: OXYTOCIN
     Indication: LABOUR INDUCTION

REACTIONS (4)
  - Product preparation error [Unknown]
  - Exposure during pregnancy [Unknown]
  - Tachycardia [Unknown]
  - Accidental overdose [Unknown]
